FAERS Safety Report 24194992 (Version 1)
Quarter: 2024Q3

REPORT INFORMATION
  Report Type: Spontaneous
  Country: US (occurrence: US)
  Receive Date: 20240809
  Receipt Date: 20240809
  Transmission Date: 20241016
  Serious: No
  Sender: PFIZER
  Company Number: US-PFIZER INC-202400231744

PATIENT

DRUGS (1)
  1. PFIZERPEN [Suspect]
     Active Substance: PENICILLIN G POTASSIUM
     Dosage: UNK (5000000U)

REACTIONS (1)
  - Rash papular [Unknown]
